FAERS Safety Report 4717090-9 (Version None)
Quarter: 2005Q3

REPORT INFORMATION
  Report Type: 
  Country: None (occurrence: None)
  Receive Date: 20050715
  Receipt Date: 20050331
  Transmission Date: 20060218
  Serious: Yes (Hospitalization)
  Sender: FDA-Public Use
  Company Number: 2005FR-00090

PATIENT
  Age: 64 Year
  Sex: Female
  Weight: 48 kg

DRUGS (4)
  1. AMOXICILLIN [Suspect]
     Indication: LOWER RESPIRATORY TRACT INFECTION
     Dosage: 500 MG, TDS, ORAL
     Route: 048
     Dates: start: 20041203, end: 20041205
  2. ARIPIPRAZOLE [Concomitant]
  3. FLUPENTHIXOL DECONOATE [Concomitant]
  4. LORAZEPAM [Concomitant]

REACTIONS (9)
  - CONFUSIONAL STATE [None]
  - EMOTIONAL DISTRESS [None]
  - GENERAL PHYSICAL HEALTH DETERIORATION [None]
  - HALLUCINATION, AUDITORY [None]
  - HEAD BANGING [None]
  - LIVER FUNCTION TEST ABNORMAL [None]
  - MALAISE [None]
  - RASH [None]
  - RESPIRATORY TRACT INFECTION [None]
